FAERS Safety Report 9164363 (Version 1)
Quarter: 2013Q1

REPORT INFORMATION
  Report Type: Spontaneous
  Country: US (occurrence: None)
  Receive Date: 20130226
  Receipt Date: 20130226
  Transmission Date: 20140127
  Serious: Yes (Other)
  Sender: FDA-Public Use
  Company Number: 2013AP003221

PATIENT
  Sex: Female

DRUGS (3)
  1. NITROFURANTOIN [Suspect]
     Indication: URINARY TRACT INFECTION
  2. GABAPENTIN (GABAPENTIN) [Suspect]
     Indication: NEURALGIA
  3. GLIMEPRIRIDE SANDOZ (GLIMEPIRIDE) [Concomitant]

REACTIONS (10)
  - Chills [None]
  - Chills [None]
  - Pyrexia [None]
  - Thirst [None]
  - Headache [None]
  - Somnolence [None]
  - Sluggishness [None]
  - Cough [None]
  - Convulsion [None]
  - Drug interaction [None]
